FAERS Safety Report 24226855 (Version 1)
Quarter: 2024Q3

REPORT INFORMATION
  Report Type: Spontaneous
  Country: US (occurrence: US)
  Receive Date: 20240820
  Receipt Date: 20240820
  Transmission Date: 20241016
  Serious: No
  Sender: REGENERON
  Company Number: US-REGENERON PHARMACEUTICALS, INC.-2023-099388

PATIENT
  Sex: Female

DRUGS (2)
  1. PRALUENT [Suspect]
     Active Substance: ALIROCUMAB
     Indication: Hypertriglyceridaemia
     Dosage: 75 MG, Q2W
     Route: 058
     Dates: start: 2023
  2. PRALUENT [Suspect]
     Active Substance: ALIROCUMAB
     Indication: Hypercholesterolaemia

REACTIONS (9)
  - Neuralgia [Unknown]
  - Chronic obstructive pulmonary disease [Unknown]
  - Upper-airway cough syndrome [Unknown]
  - Pain in extremity [Unknown]
  - Malaise [Unknown]
  - Bronchitis [Unknown]
  - Injection site swelling [Unknown]
  - Injection site pain [Unknown]
  - Non-cardiac chest pain [Unknown]

NARRATIVE: CASE EVENT DATE: 20230101
